FAERS Safety Report 16597414 (Version 4)
Quarter: 2019Q3

REPORT INFORMATION
  Report Type: Spontaneous
  Country: US (occurrence: US)
  Receive Date: 20190719
  Receipt Date: 20190917
  Transmission Date: 20191004
  Serious: No
  Sender: FDA-Public Use
  Company Number: US-PFIZER INC-2018535595

PATIENT
  Age: 62 Year
  Sex: Male

DRUGS (2)
  1. LYRICA [Suspect]
     Active Substance: PREGABALIN
     Indication: TYPE 2 DIABETES MELLITUS
     Dosage: 200 MG, 3X/DAY (1 CAP BY MOUTH 3(THREE) TIMES DAILY)
     Route: 048
     Dates: start: 20181217
  2. LYRICA [Suspect]
     Active Substance: PREGABALIN
     Indication: DIABETIC NEUROPATHY
     Dosage: 200 MG, 3X/DAY (1 CAP BY MOUTH 3(THREE) TIMES DAILY)
     Route: 048
     Dates: start: 20181115

REACTIONS (2)
  - Off label use [Unknown]
  - Malaise [Unknown]
